FAERS Safety Report 7970601-2 (Version None)
Quarter: 2011Q4

REPORT INFORMATION
  Report Type: 
  Country: None (occurrence: None)
  Receive Date: 20111212
  Receipt Date: 20111205
  Transmission Date: 20120403
  Serious: Yes (Life-Threatening, Hospitalization, Other)
  Sender: FDA-Public Use
  Company Number: AT-ABBOTT-11P-009-0706937-00

PATIENT
  Sex: Male

DRUGS (3)
  1. HUMIRA [Suspect]
     Indication: PSORIASIS
     Dosage: ONCE
     Route: 058
     Dates: start: 20091110, end: 20091110
  2. HUMIRA [Suspect]
     Route: 058
     Dates: end: 20101115
  3. HUMIRA [Suspect]
     Route: 058
     Dates: start: 20101115, end: 20101207

REACTIONS (1)
  - PANCREATIC CARCINOMA [None]
